FAERS Safety Report 13098657 (Version 1)
Quarter: 2017Q1

REPORT INFORMATION
  Report Type: Spontaneous
  Country: US (occurrence: US)
  Receive Date: 20170109
  Receipt Date: 20170109
  Transmission Date: 20170428
  Serious: Yes (Other)
  Sender: FDA-Public Use
  Company Number: US-TEVA-726995USA

PATIENT
  Sex: Female
  Weight: 61 kg

DRUGS (1)
  1. AZITHROMYCIN ANHYDROUS. [Suspect]
     Active Substance: AZITHROMYCIN ANHYDROUS
     Indication: SINUSITIS
     Route: 065
     Dates: start: 201609

REACTIONS (3)
  - Blindness transient [Unknown]
  - International normalised ratio decreased [Unknown]
  - Body height decreased [Unknown]
